FAERS Safety Report 9624300 (Version 2)
Quarter: 2013Q4

REPORT INFORMATION
  Report Type: Spontaneous
  Country: IT (occurrence: IT)
  Receive Date: 20131015
  Receipt Date: 20131111
  Transmission Date: 20140711
  Serious: Yes (Hospitalization)
  Sender: FDA-Public Use
  Company Number: IT-ELI_LILLY_AND_COMPANY-IT201310002831

PATIENT
  Age: 80 Year
  Sex: Male

DRUGS (10)
  1. HUMULIN NPH [Suspect]
     Indication: PRODUCT USED FOR UNKNOWN INDICATION
     Dosage: 2 IU, QD
     Dates: start: 20130101, end: 20130122
  2. NOVONORM [Suspect]
     Indication: PRODUCT USED FOR UNKNOWN INDICATION
     Dosage: 2 IU, QD
     Route: 048
     Dates: start: 20000101, end: 20130123
  3. ZYLORIC [Concomitant]
     Dosage: 100 MG, UNK
  4. ESKIM [Concomitant]
     Dosage: 1000 MG, UNK
  5. TOTALIP [Concomitant]
     Dosage: 20 MG, UNK
  6. ASPIRINETTA [Concomitant]
     Dosage: 100 MG, UNK
  7. ZIMOX [Concomitant]
     Dosage: 1 G, UNK
  8. EUTIROX [Concomitant]
     Dosage: 75 UG, UNK
  9. LASIX [Concomitant]
     Dosage: 75 MG, UNK
  10. ISOPTIN [Concomitant]
     Dosage: 80 MG, UNK

REACTIONS (3)
  - Hypoglycaemia [Recovering/Resolving]
  - Fall [Recovering/Resolving]
  - Head injury [Unknown]
